FAERS Safety Report 18354612 (Version 1)
Quarter: 2020Q4

REPORT INFORMATION
  Report Type: Spontaneous
  Country: US (occurrence: US)
  Receive Date: 20201006
  Receipt Date: 20201006
  Transmission Date: 20210114
  Serious: Yes (Hospitalization)
  Sender: FDA-Public Use
  Company Number: None

PATIENT
  Sex: Male

DRUGS (31)
  1. ACETAMIN [Concomitant]
     Active Substance: ACETAMINOPHEN
  2. LANTUS [Concomitant]
     Active Substance: INSULIN GLARGINE
  3. ADVAIR DISKU [Concomitant]
  4. CETIRIZINE [Concomitant]
     Active Substance: CETIRIZINE HYDROCHLORIDE
  5. ELIQUIS [Concomitant]
     Active Substance: APIXABAN
  6. FLECAINIDE [Concomitant]
     Active Substance: FLECAINIDE
  7. SENNA [Concomitant]
     Active Substance: SENNA LEAF\SENNOSIDES\SENNOSIDES A AND B
  8. SUMATRIPTAN. [Concomitant]
     Active Substance: SUMATRIPTAN
  9. DOXYCYCL HYC [Concomitant]
  10. GABAPENTIN. [Concomitant]
     Active Substance: GABAPENTIN
  11. NYSTATIN. [Concomitant]
     Active Substance: NYSTATIN
  12. TRAZODONE [Concomitant]
     Active Substance: TRAZODONE HYDROCHLORIDE
  13. BENZONATATE. [Concomitant]
     Active Substance: BENZONATATE
  14. LIDOCAINE. [Concomitant]
     Active Substance: LIDOCAINE
  15. METHYLPRED [Concomitant]
     Active Substance: METHYLPREDNISOLONE
  16. OXYCODONE [Concomitant]
     Active Substance: OXYCODONE
  17. APAP/CODEINE [Concomitant]
     Active Substance: ACETAMINOPHEN\CODEINE PHOSPHATE
  18. PENICILLIN VK [Concomitant]
     Active Substance: PENICILLIN V POTASSIUM
  19. POLYETH GLYC [Concomitant]
     Active Substance: POLYETHYLENE GLYCOLS
  20. VITAMIN D [Concomitant]
     Active Substance: VITAMIN D NOS
  21. ESBRIET [Suspect]
     Active Substance: PIRFENIDONE
     Indication: IDIOPATHIC PULMONARY FIBROSIS
     Route: 048
     Dates: start: 20190830
  22. CYCLOBENZAPR [Concomitant]
     Active Substance: CYCLOBENZAPRINE
  23. LOSARTAN POT [Concomitant]
     Active Substance: LOSARTAN POTASSIUM
  24. SOTALOL HCL [Concomitant]
     Active Substance: SOTALOL
  25. ATORVASTATIN [Concomitant]
     Active Substance: ATORVASTATIN
  26. LATANOPROST. [Concomitant]
     Active Substance: LATANOPROST
  27. MI-ACID GAS CHW [Concomitant]
  28. NARCAN [Concomitant]
     Active Substance: NALOXONE HYDROCHLORIDE
  29. PANTOPRAZOLE [Concomitant]
     Active Substance: PANTOPRAZOLE
  30. VENTOLIN HFA [Concomitant]
     Active Substance: ALBUTEROL SULFATE
  31. VERAPAMIL [Concomitant]
     Active Substance: VERAPAMIL HYDROCHLORIDE

REACTIONS (1)
  - Dyspnoea [None]
